FAERS Safety Report 25619715 (Version 1)
Quarter: 2025Q3

REPORT INFORMATION
  Report Type: Report from Study
  Country: US (occurrence: US)
  Receive Date: 20250729
  Receipt Date: 20250729
  Transmission Date: 20251021
  Serious: Yes (Hospitalization, Other)
  Sender: JOHNSON AND JOHNSON
  Company Number: US-JNJFOC-20250724445

PATIENT

DRUGS (6)
  1. TALQUETAMAB [Suspect]
     Active Substance: TALQUETAMAB
     Indication: Plasma cell myeloma refractory
     Route: 065
  2. ACETAMINOPHEN [Concomitant]
     Active Substance: ACETAMINOPHEN
     Indication: Premedication
  3. DIPHENHYDRAMINE [Concomitant]
     Active Substance: DIPHENHYDRAMINE
     Indication: Premedication
  4. TOCILIZUMAB [Concomitant]
     Active Substance: TOCILIZUMAB
     Indication: Premedication
  5. IMMUNOGLOBULINS [Concomitant]
     Indication: Premedication
     Route: 042
  6. PENTAMIDINE [Concomitant]
     Active Substance: PENTAMIDINE
     Indication: Premedication
     Route: 042

REACTIONS (9)
  - Myelosuppression [Unknown]
  - Cytokine release syndrome [Unknown]
  - Immune effector cell-associated neurotoxicity syndrome [Unknown]
  - Cytopenia [Unknown]
  - Nail disorder [Unknown]
  - Oral disorder [Unknown]
  - Skin disorder [Unknown]
  - Infection [Unknown]
  - Taste disorder [Unknown]
